FAERS Safety Report 5083253-9 (Version None)
Quarter: 2006Q3

REPORT INFORMATION
  Report Type: 
  Country: None (occurrence: None)
  Receive Date: 20060816
  Receipt Date: 20060816
  Transmission Date: 20061208
  Serious: Yes (Life-Threatening, Other)
  Sender: FDA-Public Use
  Company Number: None

PATIENT
  Age: 53 Year
  Sex: Female
  Weight: 65.7716 kg

DRUGS (6)
  1. AVONEX [Suspect]
     Indication: MULTIPLE SCLEROSIS
     Dosage: ^STANDARD DOSE^  Q WEEK IM
     Route: 030
     Dates: start: 20030601, end: 20041001
  2. PROZAC [Concomitant]
  3. CONCERTA [Concomitant]
  4. RITALIN [Concomitant]
  5. XANAX [Concomitant]
  6. .. [Concomitant]

REACTIONS (6)
  - BASAL CELL CARCINOMA [None]
  - FIBROUS HISTIOCYTOMA [None]
  - MALIGNANT MELANOMA [None]
  - MENINGIOMA [None]
  - RHEUMATOID ARTHRITIS [None]
  - SKIN LESION [None]
